FAERS Safety Report 7415969-0 (Version None)
Quarter: 2011Q2

REPORT INFORMATION
  Report Type: 
  Country: None (occurrence: None)
  Receive Date: 20110414
  Receipt Date: 20091204
  Transmission Date: 20111010
  Serious: Yes (Other)
  Sender: FDA-Public Use
  Company Number: PHHY2009DE54053

PATIENT
  Sex: Male

DRUGS (3)
  1. EXTAVIA [Suspect]
     Indication: MULTIPLE SCLEROSIS
     Dosage: 1 ML, QOD
     Route: 058
     Dates: start: 20091028
  2. OMEPRAZOLE [Concomitant]
     Dosage: 40 MG, QID
  3. CORTISONE [Concomitant]
     Dosage: 1000 MG, TID
     Route: 042

REACTIONS (19)
  - FALL [None]
  - RIB FRACTURE [None]
  - CONSTIPATION [None]
  - MULTIPLE SCLEROSIS RELAPSE [None]
  - LIMB DISCOMFORT [None]
  - FATIGUE [None]
  - MASS [None]
  - BONE FISSURE [None]
  - PAIN IN EXTREMITY [None]
  - INFLUENZA LIKE ILLNESS [None]
  - MALAISE [None]
  - CONTUSION [None]
  - NAUSEA [None]
  - ARTHRALGIA [None]
  - WEIGHT DECREASED [None]
  - SKIN DISORDER [None]
  - INJECTION SITE PAIN [None]
  - DEPRESSED MOOD [None]
  - DECREASED APPETITE [None]
